FAERS Safety Report 14655001 (Version 2)
Quarter: 2020Q3

REPORT INFORMATION
  Report Type: Report from Study
  Country: PL (occurrence: PL)
  Receive Date: 20180319
  Receipt Date: 20180402
  Transmission Date: 20201104
  Serious: Yes (Hospitalization)
  Sender: FDA-Public Use
  Company Number: PL-JNJFOC-20171121365

PATIENT
  Age: 63 Year
  Sex: Male
  Weight: 94 kg

DRUGS (28)
  1. ACENOCOUMAROL [Concomitant]
     Active Substance: ACENOCOUMAROL
     Route: 065
  2. ATORVASTEROL [Concomitant]
     Active Substance: ATORVASTATIN
     Route: 065
  3. MILRINONE [Concomitant]
     Active Substance: MILRINONE
     Route: 065
  4. ESPIRO [Concomitant]
     Route: 065
  5. AFOBAM [Concomitant]
     Route: 065
  6. BISOCARD [Concomitant]
     Active Substance: BISOPROLOL
     Route: 065
  7. NONPRES [Concomitant]
     Route: 065
  8. NO?SPA [Concomitant]
     Active Substance: DROTAVERINE HYDROCHLORIDE
     Route: 065
  9. METFORMAX [Concomitant]
     Active Substance: METFORMIN HYDROCHLORIDE
     Route: 065
  10. NEDAL [Concomitant]
     Route: 065
  11. ATROVENT [Concomitant]
     Active Substance: IPRATROPIUM BROMIDE
     Route: 065
  12. DIAZEPAM. [Concomitant]
     Active Substance: DIAZEPAM
     Route: 065
  13. FUROSEMIDE. [Concomitant]
     Active Substance: FUROSEMIDE
     Route: 065
  14. TRAMADOL. [Concomitant]
     Active Substance: TRAMADOL
     Route: 065
  15. CODEINE [Concomitant]
     Active Substance: CODEINE
     Route: 065
  16. DIUVER [Concomitant]
     Active Substance: TORSEMIDE
     Route: 065
  17. NITRENDIPINE [Concomitant]
     Active Substance: NITRENDIPINE
     Route: 065
  18. BIOTRAKSON [Concomitant]
     Active Substance: CEFTRIAXONE SODIUM
     Route: 065
  19. POLTRAM COMBO [Concomitant]
     Active Substance: ACETAMINOPHEN\TRAMADOL HYDROCHLORIDE
     Route: 065
  20. CLEXANE [Concomitant]
     Active Substance: ENOXAPARIN SODIUM
     Route: 065
  21. KALIPOZ [Concomitant]
     Active Substance: POTASSIUM CHLORIDE
     Route: 065
  22. BERODUAL [Concomitant]
     Active Substance: FENOTEROL HYDROBROMIDE\IPRATROPIUM BROMIDE
     Route: 065
  23. CARDURAXL [Concomitant]
     Active Substance: DOXAZOSIN MESYLATE
     Route: 065
  24. INDAPAMIDE. [Concomitant]
     Active Substance: INDAPAMIDE
     Route: 065
  25. TORAMIDE [Concomitant]
     Route: 065
  26. JNJ?56021927 [Suspect]
     Active Substance: APALUTAMIDE
     Indication: HORMONE-REFRACTORY PROSTATE CANCER
     Route: 048
     Dates: start: 20150925, end: 20171116
  27. KARBIS [Concomitant]
     Active Substance: CANDESARTAN CILEXETIL
     Route: 065
  28. EUTHYROX [Concomitant]
     Active Substance: LEVOTHYROXINE SODIUM
     Route: 065

REACTIONS (3)
  - Cardiac failure [Recovered/Resolved with Sequelae]
  - Cardiovascular insufficiency [Not Recovered/Not Resolved]
  - Abdominal pain [Recovered/Resolved]

NARRATIVE: CASE EVENT DATE: 20171031
